FAERS Safety Report 7435591-X (Version None)
Quarter: 2011Q2

REPORT INFORMATION
  Report Type: 
  Country: None (occurrence: None)
  Receive Date: 20110425
  Receipt Date: 20110411
  Transmission Date: 20111010
  Serious: Yes (Death, Hospitalization)
  Sender: FDA-Public Use
  Company Number: GB-WATSON-2011-05643

PATIENT
  Age: 43 Year
  Sex: Female

DRUGS (3)
  1. TACROLIMUS [Suspect]
     Indication: IMMUNOSUPPRESSION
     Dosage: UNK
  2. MYCOPHENOLATE MOFETIL [Suspect]
     Indication: IMMUNOSUPPRESSION
     Dosage: UNK
  3. CAMPATH [Suspect]
     Indication: GRAFT VERSUS HOST DISEASE
     Dosage: UNK

REACTIONS (9)
  - FUNGAL SEPSIS [None]
  - CEREBRAL INFARCTION [None]
  - LYMPHOCYTOSIS [None]
  - BLOOD BILIRUBIN INCREASED [None]
  - BLOOD LACTATE DEHYDROGENASE INCREASED [None]
  - ACUTE GRAFT VERSUS HOST DISEASE IN LIVER [None]
  - ABSCESS [None]
  - HAEMOLYTIC ANAEMIA [None]
  - HAEMOGLOBIN ABNORMAL [None]
